FAERS Safety Report 4625544-9 (Version None)
Quarter: 2005Q2

REPORT INFORMATION
  Report Type: 
  Country: None (occurrence: None)
  Receive Date: 20050401
  Receipt Date: 20030605
  Transmission Date: 20051028
  Serious: Yes (Other)
  Sender: FDA-Public Use
  Company Number: US-MERCK-0306USA00770

PATIENT
  Age: 73 Year
  Sex: Male
  Weight: 125 kg

DRUGS (12)
  1. VIOXX [Suspect]
     Indication: PAIN
     Route: 048
     Dates: start: 20000113
  2. BAYCOL [Concomitant]
     Route: 048
  3. GLYNASE [Concomitant]
     Route: 048
  4. LEVOTHROID [Concomitant]
     Route: 048
  5. IMDUR [Concomitant]
     Route: 065
  6. PROCARDIA XL [Concomitant]
     Route: 048
  7. METOPROLOL [Concomitant]
     Route: 065
  8. LASIX [Concomitant]
     Route: 048
  9. ASPIRIN [Concomitant]
     Route: 065
  10. GLUCOPHAGE [Concomitant]
     Route: 048
  11. SYNTHROID [Concomitant]
     Route: 065
  12. TYLENOL W/ CODEINE NO. 3 [Concomitant]
     Indication: PAIN
     Route: 065
     Dates: start: 20000113

REACTIONS (8)
  - ADVERSE EVENT [None]
  - ANGINA PECTORIS [None]
  - ARTHRITIS [None]
  - BLOOD PRESSURE INCREASED [None]
  - CEREBROVASCULAR ACCIDENT [None]
  - COLONIC POLYP [None]
  - CONVULSION [None]
  - GASTROOESOPHAGEAL REFLUX DISEASE [None]
